FAERS Safety Report 8044697-6 (Version None)
Quarter: 2012Q1

REPORT INFORMATION
  Report Type: 
  Country: None (occurrence: None)
  Receive Date: 20120113
  Receipt Date: 20120106
  Transmission Date: 20120608
  Serious: No
  Sender: FDA-Public Use
  Company Number: US-JNJFOC-20120102397

PATIENT
  Sex: Male
  Weight: 72.58 kg

DRUGS (3)
  1. INVEGA SUSTENNA [Suspect]
     Indication: SCHIZOAFFECTIVE DISORDER
     Route: 030
     Dates: start: 20110901
  2. DEPAKOTE [Concomitant]
     Route: 048
     Dates: start: 20110901
  3. INVEGA [Suspect]
     Indication: SCHIZOAFFECTIVE DISORDER
     Route: 048
     Dates: start: 20120101

REACTIONS (3)
  - WEIGHT INCREASED [None]
  - RETROGRADE EJACULATION [None]
  - DRUG INEFFECTIVE [None]
